FAERS Safety Report 26025703 (Version 1)
Quarter: 2025Q4

REPORT INFORMATION
  Report Type: Report from Study
  Country: JP (occurrence: JP)
  Receive Date: 20251111
  Receipt Date: 20251111
  Transmission Date: 20260118
  Serious: Yes (Other)
  Sender: RADIUS PHARM
  Company Number: JP-RADIUS HEALTH INC.-JP-RADIUS-25050960

PATIENT
  Age: 75 Year
  Sex: Female

DRUGS (1)
  1. ABALOPARATIDE [Suspect]
     Active Substance: ABALOPARATIDE
     Indication: Osteoporosis
     Dosage: 80 MICROGRAM, QD
     Route: 058
     Dates: start: 20250614

REACTIONS (9)
  - Compression fracture [Recovered/Resolved]
  - Physical deconditioning [Unknown]
  - Faeces discoloured [Recovered/Resolved]
  - Toothache [Recovered/Resolved]
  - Liver function test increased [Unknown]
  - Nasopharyngitis [Unknown]
  - Constipation [Unknown]
  - Injection site pain [Recovered/Resolved]
  - Injection site pruritus [Unknown]

NARRATIVE: CASE EVENT DATE: 20250101
